FAERS Safety Report 7123872-9 (Version None)
Quarter: 2010Q4

REPORT INFORMATION
  Report Type: 
  Country: None (occurrence: None)
  Receive Date: 20101125
  Receipt Date: 20101123
  Transmission Date: 20110411
  Serious: Yes (Death, Other)
  Sender: FDA-Public Use
  Company Number: PHHY2010IT79428

PATIENT
  Age: 57 Year
  Sex: Male

DRUGS (6)
  1. CYCLOSPORINE [Suspect]
     Indication: STEM CELL TRANSPLANT
  2. SORAFENIB [Concomitant]
     Dosage: 200 MG, BID
  3. SORAFENIB [Concomitant]
     Dosage: 400 MG, BID
  4. ARACYTIN [Concomitant]
  5. GEMTUZUMAB OZOGAMICIN [Concomitant]
  6. HYDROXYUREA [Concomitant]
     Indication: LEUKOCYTOSIS

REACTIONS (6)
  - ACUTE GRAFT VERSUS HOST DISEASE IN INTESTINE [None]
  - ACUTE MYELOID LEUKAEMIA RECURRENT [None]
  - BLAST CELLS PRESENT [None]
  - ENTEROCOLITIS VIRAL [None]
  - PANCYTOPENIA [None]
  - ROTAVIRUS INFECTION [None]
